FAERS Safety Report 18241722 (Version 1)
Quarter: 2020Q3

REPORT INFORMATION
  Report Type: Report from Study
  Country: MX (occurrence: MX)
  Receive Date: 20200908
  Receipt Date: 20200908
  Transmission Date: 20201103
  Serious: Yes (Other)
  Sender: FDA-Public Use
  Company Number: MX-BAYER-2020-129064

PATIENT
  Age: 53 Year
  Sex: Female

DRUGS (4)
  1. INSULIN [Concomitant]
     Active Substance: INSULIN NOS
     Indication: DIABETES MELLITUS
     Dosage: 35 IU S/C EVERY 24 HOURS AT NIGHT
     Dates: start: 2011
  2. NEXAVAR [Suspect]
     Active Substance: SORAFENIB
     Indication: THYROID CANCER
     Dosage: 600 MG (400 MG IN THE MORNING AND 200 MG AT NIGHT)
     Dates: start: 20200527
  3. NEXAVAR [Suspect]
     Active Substance: SORAFENIB
     Indication: THYROID CANCER
     Dosage: 400 MG, BID
     Route: 048
     Dates: start: 20200320, end: 202005
  4. METFORMIN [Concomitant]
     Active Substance: METFORMIN HYDROCHLORIDE
     Indication: DIABETES MELLITUS
     Dosage: 1 TABLET EVERY 24 HOURS
     Route: 048
     Dates: start: 2011

REACTIONS (8)
  - Alopecia [Recovering/Resolving]
  - Stomatitis [Not Recovered/Not Resolved]
  - Diarrhoea [Not Recovered/Not Resolved]
  - Madarosis [Recovering/Resolving]
  - Hepatitis [Unknown]
  - Dry skin [Recovering/Resolving]
  - Nausea [Recovered/Resolved]
  - Bone pain [Recovered/Resolved]

NARRATIVE: CASE EVENT DATE: 20200410
